FAERS Safety Report 12440201 (Version 1)
Quarter: 2016Q2

REPORT INFORMATION
  Report Type: Spontaneous
  Country: GB (occurrence: GB)
  Receive Date: 20160606
  Receipt Date: 20160606
  Transmission Date: 20160815
  Serious: Yes (Hospitalization)
  Sender: FDA-Public Use
  Company Number: GB-TEVA-664347ACC

PATIENT
  Age: 84 Year
  Sex: Female

DRUGS (12)
  1. NICORANDIL [Concomitant]
     Active Substance: NICORANDIL
     Dosage: 20 MILLIGRAM DAILY;
     Route: 048
  2. BENDROFLUMETHIAZIDE [Concomitant]
     Active Substance: BENDROFLUMETHIAZIDE
     Dosage: 2.5 MILLIGRAM DAILY; IN THE MORNING
  3. GTN [Concomitant]
     Active Substance: NITROGLYCERIN
     Dosage: SPRAY
  4. MAGNASPARTATE [Concomitant]
     Dosage: 2 DOSAGE FORMS DAILY; SACHET
  5. METFORMIN [Concomitant]
     Active Substance: METFORMIN HYDROCHLORIDE
     Dosage: 1500 MILLIGRAM DAILY;
     Route: 048
  6. ESOMEPRAZOLE [Suspect]
     Active Substance: ESOMEPRAZOLE
     Dosage: 40 MILLIGRAM DAILY;
     Route: 048
     Dates: end: 20160514
  7. ATORVASTATIN [Concomitant]
     Active Substance: ATORVASTATIN
     Dosage: 20 MILLIGRAM DAILY; AT NIGHT
     Route: 048
  8. COCODAMOL [Concomitant]
     Active Substance: ACETAMINOPHEN\CODEINE PHOSPHATE
     Dosage: 8/500?6 HOURLY
     Route: 048
  9. ASPIRIN. [Concomitant]
     Active Substance: ASPIRIN
     Dosage: 75 MILLIGRAM DAILY; IN THE MORNING
     Route: 048
  10. LISINOPRIL. [Concomitant]
     Active Substance: LISINOPRIL
     Dosage: 20 MILLIGRAM DAILY; IN THE MORNING
     Route: 048
  11. BISOPROLOL [Concomitant]
     Active Substance: BISOPROLOL
     Dosage: 5 MILLIGRAM DAILY; IN THE MORNING
     Route: 048
  12. AMLODIPINE [Concomitant]
     Active Substance: AMLODIPINE BESYLATE
     Dosage: 10 MILLIGRAM DAILY; IN THE MORNING
     Route: 048

REACTIONS (7)
  - Malaise [Unknown]
  - Hypomagnesaemia [Recovering/Resolving]
  - Microcytic anaemia [Unknown]
  - Nausea [Unknown]
  - Hypocalcaemia [Unknown]
  - Hypokalaemia [Unknown]
  - Decreased appetite [Unknown]
